FAERS Safety Report 8300284-3 (Version None)
Quarter: 2012Q2

REPORT INFORMATION
  Report Type: 
  Country: None (occurrence: None)
  Receive Date: 20120420
  Receipt Date: 20120417
  Transmission Date: 20120825
  Serious: Yes (Hospitalization, Other)
  Sender: FDA-Public Use
  Company Number: US-PFIZER INC-2012028375

PATIENT
  Sex: Female
  Weight: 86.168 kg

DRUGS (2)
  1. CHANTIX [Suspect]
     Indication: SMOKING CESSATION THERAPY
     Dosage: 0.5 MG, 1X/DAY
     Route: 048
     Dates: start: 20120110, end: 20120101
  2. CHANTIX [Suspect]
     Dosage: 1 MG, 2X/DAY
     Route: 048
     Dates: start: 20120101

REACTIONS (8)
  - CHEST PAIN [None]
  - GALLBLADDER PAIN [None]
  - INCREASED APPETITE [None]
  - NAUSEA [None]
  - GALLBLADDER OBSTRUCTION [None]
  - HEART RATE IRREGULAR [None]
  - LIVER DISORDER [None]
  - MUSCULAR WEAKNESS [None]
